FAERS Safety Report 16268690 (Version 3)
Quarter: 2019Q2

REPORT INFORMATION
  Report Type: Spontaneous
  Country: US (occurrence: US)
  Receive Date: 20190503
  Receipt Date: 20190516
  Transmission Date: 20190711
  Serious: Yes (Other)
  Sender: FDA-Public Use
  Company Number: US-AMGEN-USASP2019067886

PATIENT
  Sex: Female

DRUGS (1)
  1. NPLATE [Suspect]
     Active Substance: ROMIPLOSTIM
     Indication: PRODUCT USED FOR UNKNOWN INDICATION
     Dosage: UNK
     Route: 065

REACTIONS (16)
  - Speech disorder [Unknown]
  - Schizophreniform disorder [Unknown]
  - Immune system disorder [Unknown]
  - Arthralgia [Unknown]
  - Skin burning sensation [Unknown]
  - Platelet count abnormal [Unknown]
  - Ear infection [Unknown]
  - Overdose [Unknown]
  - Product prescribing error [Unknown]
  - Cyst [Unknown]
  - Asthenia [Unknown]
  - Seizure [Unknown]
  - Eating disorder [Unknown]
  - Cognitive disorder [Unknown]
  - Discomfort [Unknown]
  - Contusion [Unknown]

NARRATIVE: CASE EVENT DATE: 2019
